FAERS Safety Report 6140996-3 (Version None)
Quarter: 2009Q2

REPORT INFORMATION
  Report Type: 
  Country: None (occurrence: None)
  Receive Date: 20090402
  Receipt Date: 20090323
  Transmission Date: 20091009
  Serious: Yes (Hospitalization)
  Sender: FDA-Public Use
  Company Number: US-WYE-H08676709

PATIENT
  Sex: Female
  Weight: 11.8 kg

DRUGS (1)
  1. PRISTIQ [Suspect]
     Indication: ACCIDENTAL EXPOSURE
     Dosage: OVERDOSE AMOUNT WAS 2 TO 3 TABLETS (100 TO 150 MG)
     Route: 048
     Dates: start: 20090321, end: 20090321

REACTIONS (5)
  - ACCIDENTAL DRUG INTAKE BY CHILD [None]
  - ACCIDENTAL OVERDOSE [None]
  - BLOOD TEST ABNORMAL [None]
  - HEART RATE DECREASED [None]
  - HEART RATE INCREASED [None]
